FAERS Safety Report 9209517 (Version 1)
Quarter: 2013Q1

REPORT INFORMATION
  Report Type: Spontaneous
  Country: US (occurrence: None)
  Receive Date: 20120820
  Receipt Date: 20120820
  Transmission Date: 20140127
  Serious: No
  Sender: FDA-Public Use
  Company Number: 100031465

PATIENT
  Sex: Female

DRUGS (3)
  1. VIIBRYD (VILAZODONE) (10 MILLIGRAM, TABLETS) [Suspect]
     Indication: DEPRESSION
     Route: 048
  2. VIIBRYD (VILAZODONE) [Suspect]
     Indication: DEPRESSION
     Route: 048
     Dates: start: 201204
  3. RITALIN (METHYPHENIDATE HYDROCHLORIDE) (METHYPHENIDATE HYDROCHLORIDE) [Concomitant]

REACTIONS (1)
  - Sexual dysfunction [None]
